FAERS Safety Report 17210553 (Version 1)
Quarter: 2019Q4

REPORT INFORMATION
  Report Type: Report from Study
  Country: US (occurrence: US)
  Receive Date: 20191227
  Receipt Date: 20191227
  Transmission Date: 20200122
  Serious: Yes (Death, Hospitalization)
  Sender: FDA-Public Use
  Company Number: US-ACTELION-A-US2019-192219

PATIENT
  Age: 85 Year
  Sex: Female
  Weight: 56.69 kg

DRUGS (4)
  1. UPTRAVI [Suspect]
     Active Substance: SELEXIPAG
     Indication: PULMONARY ARTERIAL HYPERTENSION
     Dosage: 200 MCG, BID
     Route: 048
  2. UPTRAVI [Suspect]
     Active Substance: SELEXIPAG
     Dosage: 1600 MCG, BID
     Route: 048
  3. ELIQUIS [Concomitant]
     Active Substance: APIXABAN
  4. AMBRISENTAN [Concomitant]
     Active Substance: AMBRISENTAN

REACTIONS (11)
  - Condition aggravated [Unknown]
  - Fatigue [Not Recovered/Not Resolved]
  - Ear tube insertion [Unknown]
  - Heart rate increased [Unknown]
  - Cough [Unknown]
  - Dizziness [Unknown]
  - Death [Fatal]
  - Dyspnoea [Not Recovered/Not Resolved]
  - Atrial fibrillation [Unknown]
  - Pulmonary arterial hypertension [Unknown]
  - Syncope [Unknown]

NARRATIVE: CASE EVENT DATE: 20190619
